FAERS Safety Report 4381637-5 (Version None)
Quarter: 2004Q2

REPORT INFORMATION
  Report Type: 
  Country: None (occurrence: None)
  Receive Date: 20040621
  Receipt Date: 20040610
  Transmission Date: 20050107
  Serious: Yes (Disabling)
  Sender: FDA-Public Use
  Company Number: JP-ROCHE-370799

PATIENT
  Age: 21 Year
  Sex: Female

DRUGS (2)
  1. VESANOID [Suspect]
     Indication: ACUTE LYMPHOCYTIC LEUKAEMIA
     Route: 048
     Dates: start: 20030115, end: 20030315
  2. VESANOID [Suspect]
     Route: 048
     Dates: start: 20030815

REACTIONS (1)
  - ASEPTIC NECROSIS BONE [None]
